FAERS Safety Report 9960249 (Version 1)
Quarter: 2014Q1

REPORT INFORMATION
  Report Type: Spontaneous
  Country: US (occurrence: None)
  Receive Date: 20140228
  Receipt Date: 20140228
  Transmission Date: 20141002
  Serious: Yes (Hospitalization)
  Sender: FDA-Public Use
  Company Number: 2014P1001605

PATIENT
  Age: 72 Year
  Sex: Male

DRUGS (8)
  1. LITHIUM [Suspect]
     Indication: BIPOLAR DISORDER
  2. DULOXETINE [Concomitant]
  3. OLANZAPINE [Concomitant]
  4. PAROXETINE [Concomitant]
  5. METFORMIN [Concomitant]
  6. ARIPIPRAZOLE [Concomitant]
  7. ASPIRIN [Suspect]
  8. LISINOPRIL [Suspect]

REACTIONS (10)
  - Hypotension [None]
  - Hypothermia [None]
  - Bradycardia [None]
  - Apnoea [None]
  - Lobar pneumonia [None]
  - Breath sounds abnormal [None]
  - Depressed level of consciousness [None]
  - Multi-organ disorder [None]
  - Dehydration [None]
  - Toxicity to various agents [None]
